FAERS Safety Report 18179962 (Version 1)
Quarter: 2020Q3

REPORT INFORMATION
  Report Type: Spontaneous
  Country: US (occurrence: US)
  Receive Date: 20200820
  Receipt Date: 20200820
  Transmission Date: 20201103
  Serious: No
  Sender: FDA-Public Use
  Company Number: None

PATIENT
  Age: 40 Year
  Sex: Female

DRUGS (1)
  1. ENBREL [Suspect]
     Active Substance: ETANERCEPT
     Indication: RHEUMATOID ARTHRITIS
     Dosage: OTHER
     Route: 058

REACTIONS (4)
  - Maternal exposure timing unspecified [None]
  - Liver injury [None]
  - Premature baby [None]
  - Maternal drugs affecting foetus [None]

NARRATIVE: CASE EVENT DATE: 20200204
